FAERS Safety Report 13650687 (Version 1)
Quarter: 2017Q2

REPORT INFORMATION
  Report Type: Other
  Country: IT (occurrence: IT)
  Receive Date: 20170614
  Receipt Date: 20170614
  Transmission Date: 20170830
  Serious: Yes (Other)
  Sender: FDA-Public Use
  Company Number: IT-APOTEX-2017AP012921

PATIENT
  Age: 37 Year
  Sex: Female

DRUGS (2)
  1. LAMOTRIGINA EG [Suspect]
     Active Substance: LAMOTRIGINE
     Indication: EPILEPSY
     Dosage: UNK
     Route: 048
  2. TOPIRAMATO DOC GENERICI COMPRESSE RIVESTITE CON FILM [Suspect]
     Active Substance: TOPIRAMATE
     Indication: EPILEPSY
     Dosage: UNK
     Route: 048
     Dates: start: 201606

REACTIONS (4)
  - Epilepsy [Unknown]
  - Drug resistance [Unknown]
  - Product substitution issue [None]
  - Product substitution issue [Unknown]

NARRATIVE: CASE EVENT DATE: 201606
